FAERS Safety Report 6436625-1 (Version None)
Quarter: 2009Q4

REPORT INFORMATION
  Report Type: 
  Country: None (occurrence: None)
  Receive Date: 20091111
  Receipt Date: 20091030
  Transmission Date: 20100525
  Serious: No
  Sender: FDA-Public Use
  Company Number: US-B.I. PHARMACEUTICALS,INC./RIDGEFIELD-2009-BP-11816BP

PATIENT
  Sex: Male

DRUGS (10)
  1. SPIRIVA [Suspect]
     Indication: CHRONIC OBSTRUCTIVE PULMONARY DISEASE
     Dosage: 18 MCG
     Route: 055
     Dates: start: 20091006, end: 20091007
  2. FUROSEMIDE [Concomitant]
     Route: 048
  3. POTASSIUM CHLORIDE [Concomitant]
     Route: 048
  4. VALPROIC ACID [Concomitant]
     Route: 048
  5. LEVOTHYROXINE SODIUM [Concomitant]
     Route: 048
  6. MOEXIPRIL-HCTZ [Concomitant]
     Route: 048
  7. HYDROCODONE BITARTRATE AND ACETAMINOPHEN [Concomitant]
     Indication: PAIN
     Route: 048
  8. HYDROCODONE BITARTRATE AND ACETAMINOPHEN [Concomitant]
     Indication: COUGH
  9. AMOXICILLIN [Concomitant]
     Route: 048
  10. VENTOLIN HFA [Concomitant]
     Indication: COUGH
     Dosage: 2 PUF
     Route: 055

REACTIONS (1)
  - PRURITUS [None]
